FAERS Safety Report 8077038-9 (Version None)
Quarter: 2012Q1

REPORT INFORMATION
  Report Type: 
  Country: None (occurrence: None)
  Receive Date: 20120127
  Receipt Date: 20120119
  Transmission Date: 20120608
  Serious: Yes (Other)
  Sender: FDA-Public Use
  Company Number: PHHY2011CA33764

PATIENT
  Sex: Male

DRUGS (2)
  1. SANDOSTATIN LAR [Suspect]
     Dosage: 30 MG, EVERY 4 WEEKS
     Route: 030
  2. SANDOSTATIN LAR [Suspect]
     Indication: ADENOCARCINOMA
     Dosage: 30 MG, QMO
     Route: 030
     Dates: start: 20110414

REACTIONS (5)
  - NEOPLASM PROGRESSION [None]
  - BLOOD PRESSURE SYSTOLIC INCREASED [None]
  - POLYP [None]
  - DIARRHOEA [None]
  - EMOTIONAL DISTRESS [None]
